FAERS Safety Report 11825292 (Version 1)
Quarter: 2015Q4

REPORT INFORMATION
  Report Type: Spontaneous
  Country: US (occurrence: US)
  Receive Date: 20151211
  Receipt Date: 20151211
  Transmission Date: 20160305
  Serious: No
  Sender: FDA-Public Use
  Company Number: US-LUPIN PHARMACEUTICALS INC.-2015-03477

PATIENT
  Sex: Female

DRUGS (1)
  1. CEFUROXIME AXETIL FILM-COATED TABLETS USP [Suspect]
     Active Substance: CEFUROXIME AXETIL
     Indication: PRODUCT USED FOR UNKNOWN INDICATION
     Route: 048

REACTIONS (2)
  - Product solubility abnormal [Unknown]
  - Poor quality drug administered [Unknown]
